FAERS Safety Report 6600005-6 (Version None)
Quarter: 2010Q1

REPORT INFORMATION
  Report Type: 
  Country: None (occurrence: None)
  Receive Date: 20100217
  Receipt Date: 20100202
  Transmission Date: 20100710
  Serious: Yes (Life-Threatening)
  Sender: FDA-Public Use
  Company Number: ALA_00428_2010

PATIENT
  Age: 61 Year
  Sex: Male

DRUGS (2)
  1. ROWASA [Suspect]
     Indication: COLITIS ULCERATIVE
     Dosage: (500 MG QID RECTAL)
     Route: 054
     Dates: start: 20070101, end: 20090801
  2. METFORMIN HCL [Concomitant]

REACTIONS (3)
  - BONE MARROW FAILURE [None]
  - COLITIS ULCERATIVE [None]
  - PALLOR [None]
